FAERS Safety Report 6124321-X (Version None)
Quarter: 2009Q1

REPORT INFORMATION
  Report Type: 
  Country: None (occurrence: None)
  Receive Date: 20090317
  Receipt Date: 20090219
  Transmission Date: 20090719
  Serious: Yes (Hospitalization)
  Sender: FDA-Public Use
  Company Number: 211824

PATIENT
  Age: 65 Year
  Sex: Male
  Weight: 105 kg

DRUGS (6)
  1. CALCIUM FOLINATE [Suspect]
     Indication: COLORECTAL CANCER METASTATIC
     Dosage: 400 MG/M2, QD14, INTRAVENOUS
     Route: 042
     Dates: start: 20080819
  2. FLUOROURACIL [Suspect]
     Indication: COLORECTAL CANCER METASTATIC
     Dates: start: 20080819
  3. IRINOTECAN HCL [Suspect]
     Indication: COLORECTAL CANCER METASTATIC
     Dosage: 180 MG/M2, QD14, INTRAVENOUS
     Route: 042
     Dates: start: 20080819
  4. BEVACIZUMAB [Suspect]
     Indication: COLORECTAL CANCER METASTATIC
     Dosage: 5 MG/KG, QD14, INTRAVENOUS
     Route: 042
  5. BUDESONIDE [Concomitant]
  6. SYMBICORT [Concomitant]

REACTIONS (3)
  - DYSPNOEA [None]
  - INFECTION [None]
  - NASOPHARYNGITIS [None]
